FAERS Safety Report 16926232 (Version 1)
Quarter: 2019Q4

REPORT INFORMATION
  Report Type: Spontaneous
  Country: GB (occurrence: GB)
  Receive Date: 20191016
  Receipt Date: 20191016
  Transmission Date: 20200122
  Serious: Yes (Disabling, Other)
  Sender: FDA-Public Use
  Company Number: GB-MYLANLABS-2019M1097260

PATIENT
  Age: 49 Year
  Sex: Male
  Weight: 62 kg

DRUGS (12)
  1. DIHYDROCODEINE [Concomitant]
     Active Substance: DIHYDROCODEINE
     Dosage: 1 DOSAGE FORM (EVERY 4-6 HOURS)
     Dates: start: 20190607
  2. TRAMADOL. [Concomitant]
     Active Substance: TRAMADOL
     Indication: ABDOMINAL PAIN UPPER
     Dosage: UNK (TAKE 1-2 DAILY)
     Dates: start: 20190212, end: 20190607
  3. VENTOLIN [Concomitant]
     Active Substance: ALBUTEROL SULFATE
     Dosage: 2 DOSAGE FORM, PRN
     Route: 055
     Dates: start: 20190212
  4. BISOPROLOL [Concomitant]
     Active Substance: BISOPROLOL
     Dosage: 1 DOSAGE FORM, QD
     Dates: start: 20190212
  5. MIRTAZAPINE. [Suspect]
     Active Substance: MIRTAZAPINE
     Indication: PRODUCT USED FOR UNKNOWN INDICATION
     Dosage: 15 MILLIGRAM, QD (AT NIGHT)
     Dates: start: 20190607
  6. PANTOPRAZOLE [Concomitant]
     Active Substance: PANTOPRAZOLE
     Dosage: 2 DOSAGE FORM, QD (EACH MORNING)
     Dates: start: 20190212
  7. SERTRALINE [Concomitant]
     Active Substance: SERTRALINE HYDROCHLORIDE
     Dosage: 1 DOSAGE FORM, QD
     Dates: start: 20190212
  8. VITAMIN B [Concomitant]
     Active Substance: VITAMIN B
     Dosage: 2 DOSAGE FORM, QD
     Dates: start: 20190212
  9. FORTISIP [Concomitant]
     Active Substance: CARBOHYDRATES\FATTY ACIDS\MINERALS\PROTEIN\VITAMINS
     Dosage: UNK (USE AS DIRECTED)
     Dates: start: 20190607, end: 20190608
  10. THIAMINE. [Concomitant]
     Active Substance: THIAMINE
     Dosage: 1 DOSAGE FORM, QD
     Dates: start: 20190212
  11. CODEINE PHOSPHATE [Concomitant]
     Active Substance: CODEINE PHOSPHATE
     Indication: ABDOMINAL PAIN UPPER
     Dosage: UNK (1-2 UP TO 4 TIMES A DAY)
     Dates: start: 20190516, end: 20190523
  12. RAMIPRIL. [Concomitant]
     Active Substance: RAMIPRIL
     Dosage: 1 DOSAGE FORM, QD
     Dates: start: 20190212

REACTIONS (3)
  - Fear [Unknown]
  - Depressed mood [Recovered/Resolved]
  - Anxiety [Unknown]
